FAERS Safety Report 15301136 (Version 1)
Quarter: 2018Q3

REPORT INFORMATION
  Report Type: Spontaneous
  Country: MY (occurrence: MY)
  Receive Date: 20180821
  Receipt Date: 20180821
  Transmission Date: 20181010
  Serious: Yes (Other)
  Sender: FDA-Public Use
  Company Number: MY-VIIV HEALTHCARE LIMITED-MY2018GSK027043

PATIENT
  Age: 38 Year
  Sex: Female

DRUGS (1)
  1. TIVICAY [Suspect]
     Active Substance: DOLUTEGRAVIR SODIUM
     Indication: HIV INFECTION
     Dosage: 50 MG, 1D
     Dates: start: 20160106

REACTIONS (4)
  - Foetal death [Unknown]
  - Maternal exposure before pregnancy [Unknown]
  - Live birth [Unknown]
  - Exposure during pregnancy [Unknown]
